FAERS Safety Report 11234224 (Version 2)
Quarter: 2016Q4

REPORT INFORMATION
  Report Type: Spontaneous
  Country: GB (occurrence: GB)
  Receive Date: 20150702
  Receipt Date: 20161109
  Transmission Date: 20170206
  Serious: Yes (Disabling, Other)
  Sender: FDA-Public Use
  Company Number: GB-SUN PHARMACEUTICAL INDUSTRIES LTD-2015RR-099593

PATIENT

DRUGS (4)
  1. CIPROFLOXACIN. [Suspect]
     Active Substance: CIPROFLOXACIN
     Indication: CYSTITIS
     Dosage: 5 DAY AND 7 DAY COURSE BACK TO BACK
     Route: 048
     Dates: start: 20150501, end: 20150512
  2. AMOXICILLIN. [Concomitant]
     Active Substance: AMOXICILLIN
     Indication: PRODUCT USED FOR UNKNOWN INDICATION
     Dosage: UNK
     Route: 065
  3. TRAMADOL. [Concomitant]
     Active Substance: TRAMADOL
     Indication: PRODUCT USED FOR UNKNOWN INDICATION
     Dosage: UNK
     Route: 065
  4. VAGIFEM [Concomitant]
     Active Substance: ESTRADIOL
     Indication: PRODUCT USED FOR UNKNOWN INDICATION
     Dosage: 10 ?G, REGULAR MEDICINE
     Route: 065

REACTIONS (27)
  - Lip swelling [Unknown]
  - Feeling hot [Unknown]
  - Pain in extremity [Unknown]
  - Neuropathy peripheral [Recovering/Resolving]
  - Depression [Not Recovered/Not Resolved]
  - Gait disturbance [Not Recovered/Not Resolved]
  - Photosensitivity reaction [Not Recovered/Not Resolved]
  - Asthenia [Not Recovered/Not Resolved]
  - Eye swelling [Unknown]
  - Muscle spasms [Recovering/Resolving]
  - Back pain [Not Recovered/Not Resolved]
  - Swollen tongue [Unknown]
  - Pruritus [Unknown]
  - Tendonitis [Not Recovered/Not Resolved]
  - Headache [Not Recovered/Not Resolved]
  - Neck pain [Not Recovered/Not Resolved]
  - Paraesthesia [Not Recovered/Not Resolved]
  - Joint crepitation [Unknown]
  - Blister [Unknown]
  - Decreased appetite [Unknown]
  - Feeling abnormal [Recovering/Resolving]
  - Hypersensitivity [Unknown]
  - Wheezing [Unknown]
  - Arthralgia [Not Recovered/Not Resolved]
  - Paraesthesia oral [Not Recovered/Not Resolved]
  - Abdominal discomfort [Unknown]
  - Erythema [Unknown]

NARRATIVE: CASE EVENT DATE: 20150513
